FAERS Safety Report 10917260 (Version 2)
Quarter: 2015Q2

REPORT INFORMATION
  Report Type: Spontaneous
  Country: US (occurrence: US)
  Receive Date: 20150316
  Receipt Date: 20150524
  Transmission Date: 20150821
  Serious: No
  Sender: FDA-Public Use
  Company Number: US-JNJFOC-20141209190

PATIENT

DRUGS (1)
  1. ZYTIGA [Suspect]
     Active Substance: ABIRATERONE ACETATE
     Indication: PRODUCT USED FOR UNKNOWN INDICATION
     Route: 048
     Dates: start: 20141205

REACTIONS (6)
  - Nausea [Unknown]
  - Abdominal discomfort [Unknown]
  - Malaise [Unknown]
  - Drug dose omission [Unknown]
  - Pain [Unknown]
  - Contusion [Unknown]

NARRATIVE: CASE EVENT DATE: 20141205
